FAERS Safety Report 17864063 (Version 3)
Quarter: 2021Q2

REPORT INFORMATION
  Report Type: Spontaneous
  Country: US (occurrence: US)
  Receive Date: 20200605
  Receipt Date: 20210409
  Transmission Date: 20210717
  Serious: Yes (Other)
  Sender: FDA-Public Use
  Company Number: US-AMGEN-USA-20200500233

PATIENT
  Age: 64 Year
  Sex: Female

DRUGS (16)
  1. FLUOXETINE [Concomitant]
     Active Substance: FLUOXETINE HYDROCHLORIDE
     Dosage: UNK
     Route: 065
  2. MELOXICAM. [Concomitant]
     Active Substance: MELOXICAM
     Dosage: UNK
     Route: 065
  3. IRON [Concomitant]
     Active Substance: IRON
     Dosage: UNK
     Route: 065
  4. METHOTREXATE. [Concomitant]
     Active Substance: METHOTREXATE
     Dosage: UNK
     Route: 065
  5. CALCIUM/VITAMIN D [CALCIUM;ERGOCALCIFEROL] [Concomitant]
     Active Substance: CALCIUM\ERGOCALCIFEROL
     Dosage: UNK
     Route: 065
  6. ASPIRIN [ACETYLSALICYLIC ACID] [Concomitant]
     Active Substance: ASPIRIN
     Dosage: UNK
     Route: 065
  7. OTEZLA [Suspect]
     Active Substance: APREMILAST
     Dosage: 30 MILLIGRAM, BID
     Route: 048
  8. TOVIAZ [Concomitant]
     Active Substance: FESOTERODINE FUMARATE
     Dosage: UNK
     Route: 065
  9. VITAMIN D3 [Concomitant]
     Active Substance: CHOLECALCIFEROL
     Dosage: UNK
     Route: 065
  10. OTEZLA [Suspect]
     Active Substance: APREMILAST
     Indication: PSORIATIC ARTHROPATHY
     Dosage: 30 MILLIGRAM, BID
     Route: 048
     Dates: start: 20191204
  11. FOLIC ACID. [Concomitant]
     Active Substance: FOLIC ACID
     Dosage: UNK
     Route: 065
  12. METOPROLOL TARTRATE. [Concomitant]
     Active Substance: METOPROLOL TARTRATE
     Dosage: UNK
     Route: 065
  13. FISH OIL [Concomitant]
     Active Substance: FISH OIL
     Dosage: UNK
     Route: 065
  14. MUCINEX [Concomitant]
     Active Substance: GUAIFENESIN
     Dosage: UNK
     Route: 065
  15. MVI [ASCORBIC ACID;DEXPANTHENOL;ERGOCALCIFEROL;NICOTINAMIDE;PYRIDOXINE [Concomitant]
  16. LOVASTATIN. [Concomitant]
     Active Substance: LOVASTATIN
     Dosage: UNK
     Route: 065

REACTIONS (1)
  - Psoriatic arthropathy [Not Recovered/Not Resolved]

NARRATIVE: CASE EVENT DATE: 20200401
